FAERS Safety Report 7727147-6 (Version None)
Quarter: 2011Q3

REPORT INFORMATION
  Report Type: 
  Country: None (occurrence: None)
  Receive Date: 20110902
  Receipt Date: 20110819
  Transmission Date: 20111222
  Serious: Yes (Other)
  Sender: FDA-Public Use
  Company Number: PT-BAYER-2011-074216

PATIENT
  Age: 35 Year
  Sex: Female
  Weight: 58 kg

DRUGS (1)
  1. ASPIRIN [Suspect]
     Indication: MIGRAINE
     Route: 048
     Dates: start: 20100807

REACTIONS (7)
  - LIP OEDEMA [None]
  - HYPERSENSITIVITY [None]
  - FACE OEDEMA [None]
  - ANGIOEDEMA [None]
  - PERIORBITAL OEDEMA [None]
  - RASH MACULO-PAPULAR [None]
  - OEDEMA PERIPHERAL [None]
